FAERS Safety Report 4896819-3 (Version None)
Quarter: 2006Q1

REPORT INFORMATION
  Report Type: 
  Country: None (occurrence: None)
  Receive Date: 20060126
  Receipt Date: 20060118
  Transmission Date: 20060701
  Serious: Yes (Hospitalization, Other)
  Sender: FDA-Public Use
  Company Number: 200610179GDS

PATIENT
  Age: 17 Year
  Sex: Female

DRUGS (6)
  1. PARACETAMOL [Suspect]
     Indication: DYSMENORRHOEA
     Dosage: 1 G, TOTAL DAILY
  2. BUTYLSCOPOLAMIN (HYOSCINE BUTYLBROMIDE) [Suspect]
     Indication: DYSMENORRHOEA
     Dosage: 10 MG, TOTAL DAILY
  3. ASPIRIN [Suspect]
     Indication: DYSMENORRHOEA
     Dosage: 100 MG, TOTAL DAILY
  4. NAPROXEN [Suspect]
     Indication: DYSMENORRHOEA
     Dosage: 250 MG, TOTAL DAILY
  5. CYCLOSPORINE [Concomitant]
  6. IMMUNSUPPRESSION [Concomitant]

REACTIONS (7)
  - ANTINUCLEAR ANTIBODY POSITIVE [None]
  - AUTOIMMUNE DISORDER [None]
  - DRUG HYPERSENSITIVITY [None]
  - HEPATITIS [None]
  - HEPATOCELLULAR DAMAGE [None]
  - HEPATOTOXICITY [None]
  - HUMAN HERPES VIRUS 6 SEROLOGY POSITIVE [None]
